FAERS Safety Report 10781530 (Version 3)
Quarter: 2015Q2

REPORT INFORMATION
  Report Type: Spontaneous
  Country: US (occurrence: US)
  Receive Date: 20150210
  Receipt Date: 20150623
  Transmission Date: 20150821
  Serious: No
  Sender: FDA-Public Use
  Company Number: US-GLAXOSMITHKLINE-A1070012A

PATIENT

DRUGS (3)
  1. OXYGEN. [Concomitant]
     Active Substance: OXYGEN
  2. FLOLAN [Suspect]
     Active Substance: EPOPROSTENOL SODIUM
     Indication: COR PULMONALE CHRONIC
     Dosage: 29.3 NG/KG/MIN, 1.5 MG VIAL STRENGTH, 30,000 NG/ML CONCENTRATION
     Route: 042
  3. FLOLAN [Suspect]
     Active Substance: EPOPROSTENOL SODIUM
     Indication: PULMONARY HYPERTENSION
     Dosage: 29.32 NG/KG/MIN (CONCENTRATION 30,000 NG/ML, PUMP RATE 76 ML/DAY, VIAL STRENGTH 1.5 MG), CO
     Route: 042
     Dates: start: 20140110

REACTIONS (7)
  - Catheter site inflammation [Unknown]
  - Pain in jaw [Unknown]
  - Catheter site haemorrhage [Unknown]
  - Nasopharyngitis [Not Recovered/Not Resolved]
  - Flushing [Unknown]
  - Night sweats [Unknown]
  - Epistaxis [Unknown]
